FAERS Safety Report 7141022-X (Version None)
Quarter: 2010Q4

REPORT INFORMATION
  Report Type: 
  Country: None (occurrence: None)
  Receive Date: 20101207
  Receipt Date: 20101202
  Transmission Date: 20110411
  Serious: Yes (Hospitalization)
  Sender: FDA-Public Use
  Company Number: GB-TEVA-258233ISR

PATIENT
  Age: 15 Year
  Sex: Female

DRUGS (1)
  1. MESALAZINE [Suspect]
     Indication: INFLAMMATORY BOWEL DISEASE
     Route: 048
     Dates: start: 20101116, end: 20101119

REACTIONS (1)
  - BENIGN INTRACRANIAL HYPERTENSION [None]
